FAERS Safety Report 4373758-8 (Version None)
Quarter: 2004Q2

REPORT INFORMATION
  Report Type: 
  Country: None (occurrence: None)
  Receive Date: 20040607
  Receipt Date: 20040607
  Transmission Date: 20050107
  Serious: Yes (Other)
  Sender: FDA-Public Use
  Company Number: None

PATIENT
  Sex: Female
  Weight: 90.7194 kg

DRUGS (2)
  1. SINGULAIR [Suspect]
     Indication: ASTHMA
     Dosage: ONE A DAY ORAL
     Route: 048
     Dates: start: 19990324, end: 19990331
  2. SINGULAIR [Suspect]
     Indication: DYSPNOEA
     Dosage: ONE A DAY ORAL
     Route: 048
     Dates: start: 19990324, end: 19990331

REACTIONS (2)
  - BRONCHOSPASM [None]
  - NON-CARDIAC CHEST PAIN [None]
